FAERS Safety Report 6083870-3 (Version None)
Quarter: 2009Q1

REPORT INFORMATION
  Report Type: 
  Country: None (occurrence: None)
  Receive Date: 20090217
  Receipt Date: 20090217
  Transmission Date: 20090719
  Serious: Yes (Hospitalization)
  Sender: FDA-Public Use
  Company Number: None

PATIENT
  Sex: Male
  Weight: 95.3461 kg

DRUGS (2)
  1. SORAFENIB [Suspect]
     Indication: PANCREATIC CARCINOMA
     Dosage: 400 MG PO BID
     Route: 048
     Dates: start: 20090107, end: 20090127
  2. ERLOTINIB [Suspect]
     Indication: PANCREATIC CARCINOMA
     Dosage: 100 MG PO DAILY
     Route: 048
     Dates: start: 20090107, end: 20090127

REACTIONS (2)
  - CLOSTRIDIAL INFECTION [None]
  - FATIGUE [None]
